FAERS Safety Report 18462301 (Version 1)
Quarter: 2020Q4

REPORT INFORMATION
  Report Type: Spontaneous
  Country: US (occurrence: US)
  Receive Date: 20201104
  Receipt Date: 20201104
  Transmission Date: 20210114
  Serious: Yes (Other)
  Sender: FDA-Public Use
  Company Number: US-ASTRAZENECA-2020SF42565

PATIENT
  Sex: Female

DRUGS (1)
  1. BEVESPI AEROSPHERE [Suspect]
     Active Substance: FORMOTEROL FUMARATE\GLYCOPYRROLATE
     Dosage: UNKNOWN
     Route: 055

REACTIONS (6)
  - Restlessness [Unknown]
  - Dementia [Not Recovered/Not Resolved]
  - Product used for unknown indication [Unknown]
  - Intentional device misuse [Unknown]
  - Cerebrovascular accident [Unknown]
  - Dyspnoea [Unknown]
